FAERS Safety Report 20070936 (Version 1)
Quarter: 2021Q4

REPORT INFORMATION
  Report Type: Spontaneous
  Country: US (occurrence: US)
  Receive Date: 20211115
  Receipt Date: 20211115
  Transmission Date: 20220304
  Serious: Yes (Other)
  Sender: FDA-Public Use
  Company Number: US-PAIPHARMA-2021-US-023864

PATIENT
  Age: 65 Year
  Sex: Male

DRUGS (13)
  1. LACTULOSE [Suspect]
     Active Substance: LACTULOSE
     Indication: Constipation
  2. ANAKINRA [Concomitant]
     Active Substance: ANAKINRA
  3. NOREPINEPHRINE [Concomitant]
     Active Substance: NOREPINEPHRINE
  4. METOCLOPRAMIDE [Concomitant]
     Active Substance: METOCLOPRAMIDE
  5. SALINE ENEMA [Concomitant]
     Active Substance: SODIUM PHOSPHATE, DIBASIC\SODIUM PHOSPHATE, MONOBASIC
  6. TOCILIZUMAB [Suspect]
     Active Substance: TOCILIZUMAB
     Indication: COVID-19
  7. ALBUTEROL [Concomitant]
     Active Substance: ALBUTEROL
  8. MEROPENEM [Concomitant]
     Active Substance: MEROPENEM
  9. HYDROXYCHLOROQUINE [Concomitant]
     Active Substance: HYDROXYCHLOROQUINE
  10. ASCORBIC ACID [Concomitant]
     Active Substance: ASCORBIC ACID
  11. THIAMINE [Concomitant]
     Active Substance: THIAMINE
  12. ENOXAPARIN [Concomitant]
     Active Substance: ENOXAPARIN
  13. HEPARIN [Concomitant]
     Active Substance: HEPARIN SODIUM
     Dosage: 1500 UNITS PER HOUR
     Route: 042

REACTIONS (1)
  - Pneumatosis intestinalis [Recovered/Resolved]
